FAERS Safety Report 5232368-0 (Version None)
Quarter: 2007Q1

REPORT INFORMATION
  Report Type: 
  Country: None (occurrence: None)
  Receive Date: 20070207
  Receipt Date: 20070123
  Transmission Date: 20070707
  Serious: Yes (Hospitalization)
  Sender: FDA-Public Use
  Company Number: HQWYE260801SEP06

PATIENT
  Sex: Female
  Weight: 50 kg

DRUGS (9)
  1. ENBREL [Suspect]
     Indication: RHEUMATOID ARTHRITIS
     Route: 058
     Dates: start: 20060726, end: 20060816
  2. BONALON [Concomitant]
     Indication: OSTEOPOROSIS
     Route: 048
     Dates: start: 20030212
  3. KENACORT [Concomitant]
     Indication: RHEUMATOID ARTHRITIS
     Route: 042
     Dates: start: 20010425
  4. HERBAL PREPARATION [Concomitant]
     Dosage: UNSPECIFIED
     Route: 048
  5. CYANOCOBALAMIN [Concomitant]
     Indication: RHEUMATOID ARTHRITIS
     Route: 048
     Dates: start: 20010425
  6. ASPARA-CA [Concomitant]
     Indication: OSTEOPOROSIS
     Route: 048
     Dates: start: 20010425
  7. MOBILAT [Concomitant]
     Indication: RHEUMATOID ARTHRITIS
     Dosage: UNSPECIFIED OIT
  8. ELCATONIN [Concomitant]
     Indication: OSTEOPOROSIS
     Dosage: UNSPECIFIED
     Route: 042
     Dates: start: 20040225
  9. ALFAROL [Concomitant]
     Indication: OSTEOPOROSIS
     Route: 048
     Dates: start: 20010425

REACTIONS (2)
  - ARTHRITIS [None]
  - CONDITION AGGRAVATED [None]
